FAERS Safety Report 7480991-5 (Version None)
Quarter: 2011Q2

REPORT INFORMATION
  Report Type: 
  Country: None (occurrence: None)
  Receive Date: 20110512
  Receipt Date: 20110512
  Transmission Date: 20111010
  Serious: Yes (Other)
  Sender: FDA-Public Use
  Company Number: None

PATIENT
  Sex: Female
  Weight: 68.0396 kg

DRUGS (1)
  1. PROLIA [Suspect]
     Indication: ARTHRITIS
     Dosage: 1X INJECTION
     Dates: start: 20110201

REACTIONS (3)
  - INJECTION SITE SWELLING [None]
  - ACTIVITIES OF DAILY LIVING IMPAIRED [None]
  - INJECTION SITE PAIN [None]
